FAERS Safety Report 11336474 (Version 3)
Quarter: 2015Q3

REPORT INFORMATION
  Report Type: Spontaneous
  Country: US (occurrence: US)
  Receive Date: 20150804
  Receipt Date: 20150804
  Transmission Date: 20151125
  Serious: Yes (Hospitalization)
  Sender: FDA-Public Use
  Company Number: US-JNJFOC-20150719165

PATIENT
  Age: 23 Year
  Sex: Male
  Weight: 112.49 kg

DRUGS (2)
  1. RISPERDAL CONSTA [Suspect]
     Active Substance: RISPERIDONE
     Indication: DELUSION
     Route: 030
     Dates: start: 2011
  2. RISPERDAL CONSTA [Suspect]
     Active Substance: RISPERIDONE
     Indication: DELUSION
     Route: 030

REACTIONS (8)
  - Mental disorder [Unknown]
  - Gynaecomastia [Not Recovered/Not Resolved]
  - Amnesia [Not Recovered/Not Resolved]
  - Mental status changes [Not Recovered/Not Resolved]
  - Imprisonment [Unknown]
  - Feeling abnormal [Not Recovered/Not Resolved]
  - Treatment noncompliance [Unknown]
  - Adverse event [Unknown]

NARRATIVE: CASE EVENT DATE: 20120327
